FAERS Safety Report 7469128-6 (Version None)
Quarter: 2011Q2

REPORT INFORMATION
  Report Type: 
  Country: None (occurrence: None)
  Receive Date: 20110510
  Receipt Date: 20110427
  Transmission Date: 20111010
  Serious: Yes (Hospitalization)
  Sender: FDA-Public Use
  Company Number: CA-ELI_LILLY_AND_COMPANY-CA201104007462

PATIENT
  Sex: Male

DRUGS (9)
  1. ZYPREXA ZYDIS [Suspect]
     Indication: SCHIZOPHRENIA
     Dosage: 5 MG, UNK
     Dates: start: 20051011
  2. LOXAPINE [Concomitant]
  3. MOCLOBEMIDE [Concomitant]
  4. ALPRAZ [Concomitant]
  5. ZYPREXA [Suspect]
     Dosage: 10 MG, EACH EVENING
  6. ZYPREXA [Suspect]
     Indication: SCHIZOPHRENIA
     Dosage: 5 MG, EACH EVENING
  7. ZOPICLONE [Concomitant]
  8. OXAZEPAM [Concomitant]
  9. CIALIS [Concomitant]

REACTIONS (6)
  - MYOCARDIAL INFARCTION [None]
  - DYSLIPIDAEMIA [None]
  - BRADYCARDIA [None]
  - DIABETES MELLITUS [None]
  - NEUROPATHY PERIPHERAL [None]
  - HYPOTHYROIDISM [None]
